FAERS Safety Report 20988166 (Version 1)
Quarter: 2022Q2

REPORT INFORMATION
  Report Type: Report from Study
  Country: US (occurrence: US)
  Receive Date: 20220621
  Receipt Date: 20220621
  Transmission Date: 20220720
  Serious: Yes (Death)
  Sender: FDA-Public Use
  Company Number: US-Taiho Oncology Inc-EU-2022-01565

PATIENT
  Age: 41 Year
  Sex: Female

DRUGS (1)
  1. LONSURF [Suspect]
     Active Substance: TIPIRACIL HYDROCHLORIDE\TRIFLURIDINE
     Indication: Appendix cancer
     Dosage: UNKNOWN CYCLE
     Route: 048
     Dates: start: 20220502

REACTIONS (1)
  - Death [Fatal]

NARRATIVE: CASE EVENT DATE: 20220521
